FAERS Safety Report 7771491-3 (Version None)
Quarter: 2011Q3

REPORT INFORMATION
  Report Type: 
  Country: None (occurrence: None)
  Receive Date: 20110922
  Receipt Date: 20100924
  Transmission Date: 20111222
  Serious: No
  Sender: FDA-Public Use
  Company Number: US-ASTRAZENECA-2010SE45238

PATIENT
  Age: 58 Year
  Sex: Male
  Weight: 113.4 kg

DRUGS (4)
  1. SEROQUEL XR [Suspect]
     Route: 048
  2. SEROQUEL XR [Suspect]
     Route: 048
  3. SEROQUEL XR [Suspect]
     Indication: BIPOLAR DISORDER
     Route: 048
  4. SEROQUEL XR [Suspect]
     Indication: HALLUCINATIONS, MIXED
     Route: 048

REACTIONS (2)
  - INTENTIONAL DRUG MISUSE [None]
  - HALLUCINATION, VISUAL [None]
